FAERS Safety Report 8964433 (Version 2)
Quarter: 2013Q1

REPORT INFORMATION
  Report Type: Report from Study
  Country: CA (occurrence: CA)
  Receive Date: 20121213
  Receipt Date: 20130205
  Transmission Date: 20140127
  Serious: Yes (Hospitalization)
  Sender: FDA-Public Use
  Company Number: CA-ROCHE-1167339

PATIENT
  Age: 78 None
  Sex: Female
  Weight: 57.6 kg

DRUGS (19)
  1. RITUXIMAB [Suspect]
     Indication: RHEUMATOID ARTHRITIS
     Route: 042
     Dates: start: 20100917
  2. RITUXIMAB [Suspect]
     Route: 042
     Dates: start: 20130110
  3. RITUXIMAB [Suspect]
     Route: 042
     Dates: start: 20130123
  4. PREDNISONE [Concomitant]
     Route: 065
  5. NIZATIDINE [Concomitant]
     Route: 065
  6. VERAPAMIL HCL [Concomitant]
  7. TYLENOL #4 [Concomitant]
  8. TEVA-VENLAFAXINE [Concomitant]
  9. URSODIOL [Concomitant]
  10. TYLENOL [Concomitant]
     Indication: ARTHRALGIA
  11. CALCIUM [Concomitant]
  12. VITAMIN D [Concomitant]
  13. PROLIA [Concomitant]
  14. VENLAFAXINE [Concomitant]
  15. PLAVIX [Concomitant]
  16. TRAZODONE [Concomitant]
  17. MULTIVITAMIN [Concomitant]
  18. METHYLPREDNISOLONE [Concomitant]
     Indication: PREMEDICATION
     Route: 042
     Dates: start: 20100917
  19. DIPHENHYDRAMINE HCL [Concomitant]
     Indication: PREMEDICATION

REACTIONS (8)
  - Pelvic fracture [Recovered/Resolved]
  - Influenza [Recovered/Resolved]
  - Cerebrovascular accident [Recovered/Resolved]
  - Hypotension [Unknown]
  - Diarrhoea [Not Recovered/Not Resolved]
  - Gastrointestinal infection [Not Recovered/Not Resolved]
  - Headache [Recovered/Resolved]
  - Arthralgia [Not Recovered/Not Resolved]
